FAERS Safety Report 5903402-7 (Version None)
Quarter: 2008Q3

REPORT INFORMATION
  Report Type: 
  Country: None (occurrence: None)
  Receive Date: 20080926
  Receipt Date: 20080918
  Transmission Date: 20090109
  Serious: Yes (Death)
  Sender: FDA-Public Use
  Company Number: 002#1#2008-00676

PATIENT
  Age: 72 Year
  Sex: Male

DRUGS (5)
  1. NEUPRO [Suspect]
     Indication: PARKINSON'S DISEASE
     Dosage: 4MG/24H, 1 IN 1 TRANSDERMAL
     Route: 062
     Dates: start: 20071101, end: 20080409
  2. STALEVO 100 [Suspect]
     Indication: PARKINSON'S DISEASE
     Dosage: 150MG, 4 IN 1 D, ORAL
     Route: 048
     Dates: start: 20080701, end: 20080801
  3. REQUIP XL [Suspect]
     Indication: PARKINSON'S DISEASE
     Dosage: 10MG, 1 IN 1 D, ORAL
     Route: 048
     Dates: start: 20080808, end: 20080801
  4. CARBIDOPA AND LEVODOPA [Concomitant]
  5. AZILECT [Concomitant]

REACTIONS (3)
  - COMPLETED SUICIDE [None]
  - DEPRESSION [None]
  - PHARMACEUTICAL PRODUCT COMPLAINT [None]
